FAERS Safety Report 10182823 (Version 1)
Quarter: 2014Q2

REPORT INFORMATION
  Report Type: Spontaneous
  Country: JP (occurrence: JP)
  Receive Date: 20140520
  Receipt Date: 20140520
  Transmission Date: 20141212
  Serious: Yes (Other)
  Sender: FDA-Public Use
  Company Number: JP-TEVA-481687ISR

PATIENT
  Age: 68 Year
  Sex: Male

DRUGS (4)
  1. IRINOTECAN [Suspect]
     Indication: COLON CANCER METASTATIC
     Route: 065
     Dates: start: 201001
  2. BEVACIZUMAB [Suspect]
     Indication: COLON CANCER METASTATIC
     Route: 065
     Dates: start: 201001
  3. FOLINIC ACID [Suspect]
     Indication: COLON CANCER METASTATIC
     Route: 065
     Dates: start: 201001
  4. FLUOROURACIL [Suspect]
     Indication: COLON CANCER METASTATIC
     Route: 065
     Dates: start: 201001

REACTIONS (3)
  - Interstitial lung disease [Recovered/Resolved]
  - Diarrhoea [Unknown]
  - Proteinuria [Unknown]
